FAERS Safety Report 25097872 (Version 1)
Quarter: 2025Q1

REPORT INFORMATION
  Report Type: Spontaneous
  Country: US (occurrence: US)
  Receive Date: 20250320
  Receipt Date: 20250320
  Transmission Date: 20250409
  Serious: No
  Sender: ALKEM
  Company Number: US-ALKEM LABORATORIES LIMITED-US-ALKEM-2024-25817

PATIENT

DRUGS (1)
  1. BREXPIPRAZOLE [Suspect]
     Active Substance: BREXPIPRAZOLE
     Indication: Borderline personality disorder
     Dosage: UNK, QD 2 TO 3 MILLIGRAM PER DAY, (FLEXIBLE DOSE FOR 12 WEEKS)
     Route: 048

REACTIONS (1)
  - Treatment noncompliance [Unknown]
